FAERS Safety Report 5114908-5 (Version None)
Quarter: 2006Q3

REPORT INFORMATION
  Report Type: 
  Country: None (occurrence: None)
  Receive Date: 20060921
  Receipt Date: 20060908
  Transmission Date: 20061208
  Serious: Yes (Hospitalization)
  Sender: FDA-Public Use
  Company Number: 2006110066

PATIENT
  Sex: Female

DRUGS (2)
  1. CLINDAMYCIN HYDROCHLORIDE [Suspect]
     Indication: TONSILLITIS
     Dosage: 300 MG (300 MG, INTERVAL: ONE DOSE ONLY), ORAL
     Route: 048
     Dates: start: 20060908, end: 20060908
  2. CLARITHROMYCIN [Concomitant]

REACTIONS (2)
  - DYSPNOEA [None]
  - RASH [None]
